FAERS Safety Report 10037065 (Version 1)
Quarter: 2014Q1

REPORT INFORMATION
  Report Type: Spontaneous
  Country: FR (occurrence: FR)
  Receive Date: 20140326
  Receipt Date: 20140326
  Transmission Date: 20141002
  Serious: Yes (Hospitalization)
  Sender: FDA-Public Use
  Company Number: FR-BRISTOL-MYERS SQUIBB COMPANY-20551925

PATIENT
  Age: 72 Year
  Sex: Male

DRUGS (5)
  1. HYDREA CAPS [Suspect]
     Dosage: INT?RESTART 1FEB14, INT RESTART 3FEB14,INT,RESTART 8FEB14
     Route: 048
     Dates: start: 201312
  2. XAGRID [Suspect]
     Dosage: INT?RESTART 1FEB14, INT, RESTART 3FEB14,INT,RESTART 6FEB14
     Route: 048
     Dates: start: 201312
  3. ENALAPRIL MALEATE+LERCANIDIPINE HCL [Concomitant]
  4. PANTOPRAZOLE [Concomitant]
  5. AUGMENTIN [Concomitant]

REACTIONS (3)
  - Pyrexia [Recovered/Resolved]
  - Pneumonia [Recovered/Resolved]
  - Pleural effusion [Recovered/Resolved]
